FAERS Safety Report 20957750 (Version 1)
Quarter: 2022Q2

REPORT INFORMATION
  Report Type: Spontaneous
  Country: CA (occurrence: CA)
  Receive Date: 20220614
  Receipt Date: 20220614
  Transmission Date: 20220721
  Serious: Yes (Other)
  Sender: FDA-Public Use
  Company Number: CA-TEVA-2022-CA-2045732

PATIENT
  Age: 71 Year
  Sex: Male
  Weight: 94 kg

DRUGS (13)
  1. TAMSULOSIN [Suspect]
     Active Substance: TAMSULOSIN
     Indication: Lower urinary tract symptoms
     Dosage: .4 MILLIGRAM DAILY;
     Route: 048
  2. TAMSULOSIN [Suspect]
     Active Substance: TAMSULOSIN
     Indication: Hypertonic bladder
  3. BILASTINE [Concomitant]
     Active Substance: BILASTINE
  4. CLOBETASOL [Concomitant]
     Active Substance: CLOBETASOL
  5. GLICLAZIDE [Concomitant]
     Active Substance: GLICLAZIDE
  6. DUTASTERIDE [Concomitant]
     Active Substance: DUTASTERIDE
  7. JENTADUETO [Concomitant]
     Active Substance: LINAGLIPTIN\METFORMIN HYDROCHLORIDE
  8. LEVOTHYROXINE [Concomitant]
     Active Substance: LEVOTHYROXINE
  9. NASONEX [Concomitant]
     Active Substance: MOMETASONE FUROATE
  10. PRAVASTATIN SODIUM [Concomitant]
     Active Substance: PRAVASTATIN SODIUM
  11. SYMBICORT [Concomitant]
     Active Substance: BUDESONIDE\FORMOTEROL FUMARATE DIHYDRATE
     Route: 065
  12. TELMISARTAN [Concomitant]
     Active Substance: TELMISARTAN
  13. TOVIAZ [Concomitant]
     Active Substance: FESOTERODINE FUMARATE

REACTIONS (3)
  - Hypertonic bladder [Recovered/Resolved]
  - Drug ineffective [Recovered/Resolved]
  - Product substitution issue [Recovered/Resolved]
